FAERS Safety Report 7560220-4 (Version None)
Quarter: 2011Q2

REPORT INFORMATION
  Report Type: 
  Country: None (occurrence: None)
  Receive Date: 20110621
  Receipt Date: 20110614
  Transmission Date: 20111010
  Serious: Yes (Hospitalization)
  Sender: FDA-Public Use
  Company Number: ES-TEVA-286856ISR

PATIENT
  Age: 67 Year
  Sex: Male

DRUGS (9)
  1. CODEISAN COMPRIMIDOS 10 COMPRIMIDOS [Suspect]
     Indication: RESPIRATORY TRACT INFECTION
     Dosage: 30 MILLIGRAM;
     Route: 048
     Dates: start: 20110103, end: 20110105
  2. METFFORMIN HYDROCHLORIDE [Concomitant]
     Indication: TYPE 2 DIABETES MELLITUS
     Dosage: 1700 MILLIGRAM;
     Route: 048
     Dates: start: 20100301
  3. PRAVASTATIN [Concomitant]
     Indication: DYSLIPIDAEMIA
     Dosage: 20 MILLIGRAM;
     Route: 048
     Dates: start: 20100301, end: 20110105
  4. MOXIFLOXACIN HYDROCHLORIDE [Suspect]
     Indication: RESPIRATORY TRACT INFECTION
     Dosage: 400 MILLIGRAM;
     Route: 048
     Dates: start: 20110103, end: 20110105
  5. ACETYLCYSTEINE [Concomitant]
     Indication: RESPIRATORY TRACT INFECTION
     Dosage: 600 MILLIGRAM;
     Route: 048
     Dates: start: 20110103, end: 20110105
  6. VERAPAMIL HCL [Concomitant]
     Indication: HYPERTENSION
     Route: 048
     Dates: start: 20100301, end: 20110105
  7. REPAGLINIDE [Concomitant]
     Indication: TYPE 2 DIABETES MELLITUS
     Dosage: 4 MILLIGRAM;
     Route: 048
  8. MOXONIDINE [Concomitant]
     Indication: HYPERTENSION
     Dosage: .3 MILLIGRAM;
     Route: 048
  9. IBUPROFEN [Suspect]
     Indication: RESPIRATORY TRACT INFECTION
     Dosage: 1.8 GRAM;
     Route: 048
     Dates: start: 20110103, end: 20110105

REACTIONS (2)
  - RENAL FAILURE ACUTE [None]
  - HYPERKALAEMIA [None]
